FAERS Safety Report 9480225 (Version 1)
Quarter: 2013Q3

REPORT INFORMATION
  Report Type: Spontaneous
  Country: US (occurrence: US)
  Receive Date: 20130828
  Receipt Date: 20130828
  Transmission Date: 20140515
  Serious: Yes (Hospitalization)
  Sender: FDA-Public Use
  Company Number: US-AMGEN-KDL086675

PATIENT
  Age: 54 Year
  Sex: Female

DRUGS (8)
  1. ENBREL [Suspect]
     Indication: RHEUMATOID ARTHRITIS
     Dosage: 25 MG, 2 TIMES/WK
     Route: 058
     Dates: start: 19981204
  2. HORMONE NOS [Suspect]
  3. METHOTREXATE [Concomitant]
  4. LEFLUNOMIDE [Concomitant]
  5. AZATHIOPRINE [Concomitant]
  6. PREDNISONE [Concomitant]
  7. CELECOXIB [Concomitant]
  8. ADALIMUMAB [Concomitant]

REACTIONS (10)
  - Gastroenteritis viral [Unknown]
  - Headache [Unknown]
  - Drug ineffective [Unknown]
  - Uterine disorder [Unknown]
  - Vomiting [Unknown]
  - Dysfunctional uterine bleeding [Unknown]
  - Anaemia [Unknown]
  - Intrauterine infection [Unknown]
  - Urticaria [Unknown]
  - Nodule [Unknown]
